FAERS Safety Report 9774772 (Version 5)
Quarter: 2014Q3

REPORT INFORMATION
  Report Type: Spontaneous
  Country: US (occurrence: US)
  Receive Date: 20131220
  Receipt Date: 20140923
  Transmission Date: 20150326
  Serious: Yes (Other)
  Sender: FDA-Public Use
  Company Number: US-SA-2013SA129342

PATIENT
  Age: 44 Year
  Sex: Male

DRUGS (5)
  1. AUBAGIO [Suspect]
     Active Substance: TERIFLUNOMIDE
     Indication: MULTIPLE SCLEROSIS
     Route: 048
     Dates: start: 20130522
  2. FISH OIL [Concomitant]
     Active Substance: FISH OIL
  3. AMITRIPTYLINE [Concomitant]
     Active Substance: AMITRIPTYLINE
  4. MELATONIN [Concomitant]
     Active Substance: MELATONIN
  5. AMPYRA [Concomitant]
     Active Substance: DALFAMPRIDINE
     Indication: MULTIPLE SCLEROSIS
     Dates: start: 20130503

REACTIONS (7)
  - Asthenia [Unknown]
  - Mobility decreased [Unknown]
  - Vomiting [Unknown]
  - Central nervous system lesion [Unknown]
  - Tremor [Unknown]
  - Dehydration [Unknown]
  - Therapeutic response decreased [Unknown]

NARRATIVE: CASE EVENT DATE: 2013
